FAERS Safety Report 20332528 (Version 1)
Quarter: 2022Q1

REPORT INFORMATION
  Report Type: Report from Study
  Country: KR (occurrence: KR)
  Receive Date: 20220113
  Receipt Date: 20220113
  Transmission Date: 20220424
  Serious: Yes (Hospitalization)
  Sender: FDA-Public Use
  Company Number: KR-SA-SAC20220106000032

PATIENT
  Age: 78 Year
  Sex: Female
  Weight: 55.2 kg

DRUGS (17)
  1. AFLIBERCEPT [Suspect]
     Active Substance: AFLIBERCEPT
     Indication: Colorectal cancer
     Dosage: 4 MG/KG, QOW
     Route: 042
     Dates: start: 20210713
  2. AFLIBERCEPT [Suspect]
     Active Substance: AFLIBERCEPT
     Indication: Rectal cancer
     Dosage: 4 MG/KG, QOW
     Route: 042
     Dates: start: 20210914
  3. AFLIBERCEPT [Suspect]
     Active Substance: AFLIBERCEPT
     Dosage: 4 MG/KG, QOW
     Route: 042
     Dates: start: 20220104
  4. AFLIBERCEPT [Suspect]
     Active Substance: AFLIBERCEPT
     Dosage: 3.2 MG/KG, QOW
     Route: 042
     Dates: start: 20210713
  5. AFLIBERCEPT [Suspect]
     Active Substance: AFLIBERCEPT
     Dosage: 3.2 MG/KG, QOW
     Route: 042
     Dates: start: 20210914
  6. AFLIBERCEPT [Suspect]
     Active Substance: AFLIBERCEPT
     Dosage: 3.2 MG/KG, QOW
     Route: 042
     Dates: start: 20220104
  7. ZALTRAP [Suspect]
     Active Substance: ZIV-AFLIBERCEPT
     Indication: Rectal cancer
     Dosage: 4 MG/KG, QOW
     Route: 042
     Dates: start: 20210713
  8. ZALTRAP [Suspect]
     Active Substance: ZIV-AFLIBERCEPT
     Indication: Colorectal cancer
     Dosage: 4 MG/KG, QOW
     Route: 042
     Dates: start: 20210914
  9. ZALTRAP [Suspect]
     Active Substance: ZIV-AFLIBERCEPT
     Dosage: 4 MG/KG, QOW
     Route: 042
     Dates: start: 20220104
  10. ZALTRAP [Suspect]
     Active Substance: ZIV-AFLIBERCEPT
     Dosage: 3.2 MG/KG, QOW
     Route: 042
     Dates: start: 20210713
  11. ZALTRAP [Suspect]
     Active Substance: ZIV-AFLIBERCEPT
     Dosage: 3.2 MG/KG, QOW
     Route: 042
     Dates: start: 20210914
  12. ZALTRAP [Suspect]
     Active Substance: ZIV-AFLIBERCEPT
     Dosage: 3.2 MG/KG, QOW
     Route: 042
     Dates: start: 20220104
  13. IRINOTECAN [Suspect]
     Active Substance: IRINOTECAN
     Indication: Rectal cancer
     Dosage: 144 MG/M2, QOW
     Route: 042
     Dates: start: 20210713
  14. LEUCOVORIN [Suspect]
     Active Substance: LEUCOVORIN
     Indication: Rectal cancer
     Dosage: 160 MG/M2, QOW
     Route: 042
     Dates: start: 20210713
  15. FLUOROURACIL [Suspect]
     Active Substance: FLUOROURACIL
     Indication: Rectal cancer
     Dosage: 320 MG/M2, QOW
     Route: 040
     Dates: start: 20210713
  16. FLUOROURACIL [Suspect]
     Active Substance: FLUOROURACIL
     Indication: Rectal cancer
     Dosage: 1920 MG/M2, QOW
     Route: 041
     Dates: start: 20210713
  17. CEFACLOR [Concomitant]
     Active Substance: CEFACLOR
     Indication: Sinusitis
     Dosage: 250 MG, TID
     Route: 042
     Dates: start: 20220108

REACTIONS (1)
  - Sinusitis [Not Recovered/Not Resolved]

NARRATIVE: CASE EVENT DATE: 20220105
